FAERS Safety Report 24347198 (Version 1)
Quarter: 2024Q3

REPORT INFORMATION
  Report Type: Spontaneous
  Country: AT (occurrence: AT)
  Receive Date: 20240921
  Receipt Date: 20240921
  Transmission Date: 20241017
  Serious: Yes (Hospitalization)
  Sender: DAIICHI
  Company Number: AT-DSJP-DSE-2024-144473

PATIENT
  Age: 84 Year
  Sex: Female
  Weight: 57 kg

DRUGS (3)
  1. EDOXABAN TOSYLATE [Suspect]
     Active Substance: EDOXABAN TOSYLATE
     Indication: Cerebrovascular accident
     Dosage: 60 MG, QD
     Route: 065
     Dates: start: 202204
  2. EDOXABAN TOSYLATE [Suspect]
     Active Substance: EDOXABAN TOSYLATE
     Dosage: 30 MG, ONCE EVERY 1 WK
     Route: 065
  3. CANDAM [Concomitant]
     Indication: Hypertension
     Dosage: UNK
     Route: 048

REACTIONS (3)
  - Hip fracture [Recovering/Resolving]
  - Impaired healing [Not Recovered/Not Resolved]
  - Inappropriate schedule of product administration [Not Recovered/Not Resolved]

NARRATIVE: CASE EVENT DATE: 20240301
